FAERS Safety Report 12294721 (Version 1)
Quarter: 2016Q2

REPORT INFORMATION
  Report Type: Spontaneous
  Country: US (occurrence: None)
  Receive Date: 20160421
  Receipt Date: 20160421
  Transmission Date: 20160815
  Serious: Yes (Hospitalization)
  Sender: FDA-Public Use
  Company Number: None

PATIENT
  Age: 83 Year
  Sex: Male
  Weight: 86.6 kg

DRUGS (1)
  1. GEMCITABINE HYDROCHLORIDE. [Suspect]
     Active Substance: GEMCITABINE HYDROCHLORIDE
     Dates: end: 20160404

REACTIONS (10)
  - Facial bones fracture [None]
  - Gait disturbance [None]
  - Face injury [None]
  - Contusion [None]
  - Headache [None]
  - Anaemia [None]
  - Laceration [None]
  - Fall [None]
  - Skin abrasion [None]
  - International normalised ratio increased [None]

NARRATIVE: CASE EVENT DATE: 20160408
